FAERS Safety Report 21816604 (Version 2)
Quarter: 2023Q1

REPORT INFORMATION
  Report Type: Report from Study
  Country: IT (occurrence: IT)
  Receive Date: 20230104
  Receipt Date: 20230107
  Transmission Date: 20230418
  Serious: Yes (Hospitalization, Other)
  Sender: FDA-Public Use
  Company Number: IT-CELLTRION INC.-2022IT019911

PATIENT

DRUGS (7)
  1. RITUXIMAB [Suspect]
     Active Substance: RITUXIMAB
     Indication: Splenic marginal zone lymphoma
     Dosage: 375 MILLIGRAM/KILOGRAM, WEEKLY
     Route: 042
     Dates: start: 20221103, end: 20221103
  2. LENALIDOMIDE [Suspect]
     Active Substance: LENALIDOMIDE
     Indication: Splenic marginal zone lymphoma
     Dosage: 20 MILLIGRAM, QD
     Route: 048
     Dates: start: 20221103, end: 20221103
  3. TAFASITAMAB [Suspect]
     Active Substance: TAFASITAMAB
     Indication: Splenic marginal zone lymphoma
     Dosage: 12 MG/KG, WEEKLY
     Route: 042
     Dates: start: 20221103, end: 20221104
  4. ACETAMINOPHEN [Concomitant]
     Active Substance: ACETAMINOPHEN
     Dosage: UNK
     Dates: start: 20221102, end: 20221102
  5. CHLORPHENIRAMINE MALEATE [Concomitant]
     Active Substance: CHLORPHENIRAMINE MALEATE
     Dosage: UNK
     Dates: start: 20221102, end: 20221102
  6. METHYLPREDNISOLONE [Concomitant]
     Active Substance: METHYLPREDNISOLONE
     Dosage: UNK
     Dates: start: 20221102, end: 20221102
  7. ENOXAPARIN SODIUM [Concomitant]
     Active Substance: ENOXAPARIN SODIUM
     Dosage: UNK
     Dates: start: 20221102

REACTIONS (3)
  - Internal haemorrhage [Unknown]
  - Septic shock [Recovered/Resolved]
  - Off label use [Unknown]

NARRATIVE: CASE EVENT DATE: 20221104
